FAERS Safety Report 7574239-0 (Version None)
Quarter: 2011Q2

REPORT INFORMATION
  Report Type: 
  Country: None (occurrence: None)
  Receive Date: 20110627
  Receipt Date: 20110516
  Transmission Date: 20111010
  Serious: No
  Sender: FDA-Public Use
  Company Number: US-BAYER-2011-042981

PATIENT
  Age: 26 Year
  Sex: Female
  Weight: 65 kg

DRUGS (1)
  1. ALEVE (CAPLET) [Suspect]
     Dosage: UNK
     Route: 048
     Dates: start: 20110517

REACTIONS (6)
  - RASH MACULAR [None]
  - HYPERSENSITIVITY [None]
  - URTICARIA [None]
  - PRURITUS [None]
  - SWELLING FACE [None]
  - LIP SWELLING [None]
